FAERS Safety Report 14383983 (Version 5)
Quarter: 2022Q4

REPORT INFORMATION
  Report Type: Spontaneous
  Country: US (occurrence: None)
  Receive Date: 20180115
  Receipt Date: 20221010
  Transmission Date: 20230113
  Serious: Yes (Other)
  Sender: FDA-Public Use
  Company Number: 2018SE03276

PATIENT
  Age: 11037 Day
  Sex: Female
  Weight: 149.2 kg

DRUGS (63)
  1. PRILOSEC OTC [Suspect]
     Active Substance: OMEPRAZOLE MAGNESIUM
     Indication: Gastrooesophageal reflux disease
     Route: 048
     Dates: start: 200902, end: 201207
  2. PRILOSEC OTC [Suspect]
     Active Substance: OMEPRAZOLE MAGNESIUM
     Indication: Gastrooesophageal reflux disease
     Route: 048
     Dates: start: 2009, end: 2017
  3. PRILOSEC OTC [Suspect]
     Active Substance: OMEPRAZOLE MAGNESIUM
     Indication: Gastrooesophageal reflux disease
     Dosage: 20.0MG UNKNOWN
     Route: 048
     Dates: start: 20090216
  4. OMEPRAZOLE [Suspect]
     Active Substance: OMEPRAZOLE
     Indication: Gastrooesophageal reflux disease
     Dosage: GENERIC
     Route: 048
     Dates: start: 201203, end: 2021
  5. OMEPRAZOLE [Suspect]
     Active Substance: OMEPRAZOLE
     Indication: Gastrooesophageal reflux disease
     Route: 065
     Dates: start: 2009, end: 2017
  6. OMEPRAZOLE [Suspect]
     Active Substance: OMEPRAZOLE
     Indication: Gastrooesophageal reflux disease
     Dosage: 40.0MG UNKNOWN
     Route: 048
     Dates: start: 20120217
  7. OMEPRAZOLE [Suspect]
     Active Substance: OMEPRAZOLE
     Indication: Gastrooesophageal reflux disease
     Dosage: PRILOSEC20.0MG UNKNOWN
     Route: 048
     Dates: start: 20120530
  8. OMEPRAZOLE [Suspect]
     Active Substance: OMEPRAZOLE
     Indication: Gastrooesophageal reflux disease
     Dosage: 20.0MG UNKNOWN
     Route: 048
     Dates: start: 20130320
  9. OMEPRAZOLE [Suspect]
     Active Substance: OMEPRAZOLE
     Indication: Gastrooesophageal reflux disease
     Dosage: 20.0MG UNKNOWN
     Route: 048
     Dates: start: 20140702
  10. OMEPRAZOLE [Suspect]
     Active Substance: OMEPRAZOLE
     Indication: Gastrooesophageal reflux disease
     Dosage: GENERIC UNKNOWN
     Route: 065
     Dates: start: 201203
  11. PANTOPRAZOLE [Suspect]
     Active Substance: PANTOPRAZOLE
     Indication: Gastrooesophageal reflux disease
     Route: 065
     Dates: start: 2021, end: 202205
  12. PANTOPRAZOLE [Suspect]
     Active Substance: PANTOPRAZOLE
     Indication: Gastrooesophageal reflux disease
     Route: 065
  13. NAPROXEN [Concomitant]
     Active Substance: NAPROXEN
     Route: 048
     Dates: start: 20080207
  14. TRAMADOL [Concomitant]
     Active Substance: TRAMADOL
     Dosage: TRAMADOL/APAP 37.5/325MG
     Route: 048
     Dates: start: 20080808
  15. NADOLOL [Concomitant]
     Active Substance: NADOLOL
     Route: 048
     Dates: start: 20090216
  16. VESICARE [Concomitant]
     Active Substance: SOLIFENACIN SUCCINATE
     Route: 048
     Dates: start: 20101016
  17. SERTRALINE [Concomitant]
     Active Substance: SERTRALINE HYDROCHLORIDE
     Route: 048
     Dates: start: 20110119
  18. DOCQLACE [Concomitant]
     Active Substance: DOCUSATE SODIUM
     Route: 048
     Dates: start: 20151211
  19. TRAZODONE [Concomitant]
     Active Substance: TRAZODONE HYDROCHLORIDE
     Route: 048
     Dates: start: 20111219
  20. CITALOPRAM [Concomitant]
     Active Substance: CITALOPRAM HYDROBROMIDE
     Route: 048
     Dates: start: 20120214
  21. OXYCODONE [Concomitant]
     Active Substance: OXYCODONE
     Dosage: OXYCODONE/APAP 5-325MG
     Route: 048
     Dates: start: 20100824
  22. ONDANSETRON [Concomitant]
     Active Substance: ONDANSETRON
     Route: 048
     Dates: start: 20141201
  23. LOSARTAN [Concomitant]
     Active Substance: LOSARTAN
     Route: 048
     Dates: start: 20150506
  24. LISINOPRIL [Concomitant]
     Active Substance: LISINOPRIL
     Route: 048
     Dates: start: 20150727
  25. DOCUSATE [Concomitant]
     Active Substance: DOCUSATE
     Route: 048
     Dates: start: 20080207
  26. PREDNISONE [Concomitant]
     Active Substance: PREDNISONE
     Route: 048
     Dates: start: 20151110
  27. CEPHALEXIN [Concomitant]
     Active Substance: CEPHALEXIN
     Route: 048
     Dates: start: 20160730
  28. SENNALAX [Concomitant]
     Route: 048
     Dates: start: 20140219
  29. VITAMIN D [Concomitant]
     Active Substance: VITAMIN D NOS
     Indication: Vitamin D deficiency
     Dates: start: 20130808
  30. VITAMIN D [Concomitant]
     Active Substance: VITAMIN D NOS
     Indication: Vitamin D deficiency
     Dates: start: 2015
  31. CALCIUM [Concomitant]
     Active Substance: CALCIUM
     Indication: Routine health maintenance
     Dates: start: 2015
  32. CALCIUM [Concomitant]
     Active Substance: CALCIUM
     Indication: Routine health maintenance
     Dates: start: 20151115
  33. MIRALAX [Concomitant]
     Active Substance: POLYETHYLENE GLYCOL 3350
  34. VENTOLIN HFA [Concomitant]
     Active Substance: ALBUTEROL SULFATE
  35. NEORAL [Concomitant]
     Active Substance: CYCLOSPORINE
  36. DIFLUCAN [Concomitant]
     Active Substance: FLUCONAZOLE
  37. TAMIFLU [Concomitant]
     Active Substance: OSELTAMIVIR PHOSPHATE
  38. IMITREX [Concomitant]
     Active Substance: SUMATRIPTAN SUCCINATE
  39. TOPAMAX [Concomitant]
     Active Substance: TOPIRAMATE
  40. KETOROLAC [Concomitant]
     Active Substance: KETOROLAC TROMETHAMINE
  41. ANTIVERT [Concomitant]
     Active Substance: MECLIZINE HYDROCHLORIDE
     Dosage: OXYCODONE/APAP 5-325MG
     Route: 048
     Dates: start: 20100824
  42. ACETAMINOPHEN\HYDROCODONE BITARTRATE [Concomitant]
     Active Substance: ACETAMINOPHEN\HYDROCODONE BITARTRATE
  43. BENZONATATE [Concomitant]
     Active Substance: BENZONATATE
  44. IBUPROFEN [Concomitant]
     Active Substance: IBUPROFEN
  45. FERROUS SULFATE [Concomitant]
     Active Substance: FERROUS SULFATE
  46. METRONIDAZOLE [Concomitant]
     Active Substance: METRONIDAZOLE
  47. FLUTICASONE [Concomitant]
     Active Substance: FLUTICASONE
  48. AZITHROMYCIN [Concomitant]
     Active Substance: AZITHROMYCIN
  49. TRETIONIN [Concomitant]
  50. CALCITRIOL [Concomitant]
     Active Substance: CALCITRIOL
  51. DOXICYCLINE [Concomitant]
  52. FUROSEMIDE [Concomitant]
     Active Substance: FUROSEMIDE
  53. AMITRIPTYLINE [Concomitant]
     Active Substance: AMITRIPTYLINE
  54. SUMATRIPTAN [Concomitant]
     Active Substance: SUMATRIPTAN
  55. CLINDAMYCIN [Concomitant]
     Active Substance: CLINDAMYCIN
  56. ESCITALOPRAM OXALATE [Concomitant]
     Active Substance: ESCITALOPRAM OXALATE
  57. VALSARTAN [Concomitant]
     Active Substance: VALSARTAN
  58. METOPROLOL [Concomitant]
     Active Substance: METOPROLOL
  59. LORAZEPAM [Concomitant]
     Active Substance: LORAZEPAM
  60. HYDRALAZINE [Concomitant]
     Active Substance: HYDRALAZINE HYDROCHLORIDE
  61. METHYLPREDNISOLONE [Concomitant]
     Active Substance: METHYLPREDNISOLONE
  62. CETIRIZINE HYDROCHLORIDE [Concomitant]
     Active Substance: CETIRIZINE HYDROCHLORIDE
  63. TRETINOIN [Concomitant]
     Active Substance: TRETINOIN

REACTIONS (3)
  - Chronic kidney disease [Not Recovered/Not Resolved]
  - Acute kidney injury [Unknown]
  - Renal tubular injury [Unknown]

NARRATIVE: CASE EVENT DATE: 20120624
